FAERS Safety Report 5455593-2 (Version None)
Quarter: 2007Q3

REPORT INFORMATION
  Report Type: 
  Country: None (occurrence: None)
  Receive Date: 20070913
  Receipt Date: 20070913
  Transmission Date: 20080115
  Serious: No
  Sender: FDA-Public Use
  Company Number: None

PATIENT
  Age: 45 Year
  Sex: Female
  Weight: 82.5547 kg

DRUGS (3)
  1. BARIUM SULFATE [Suspect]
     Indication: ABDOMINAL PAIN
     Dates: start: 20070101, end: 20070911
  2. BARIUM SULFATE [Suspect]
     Indication: OVARIAN DISORDER
     Dates: start: 20070101, end: 20070911
  3. IV CONTRAST [Suspect]

REACTIONS (7)
  - ABDOMINAL PAIN [None]
  - NAUSEA [None]
  - PAIN [None]
  - PHARYNGOLARYNGEAL PAIN [None]
  - RASH [None]
  - SWELLING FACE [None]
  - VOMITING [None]
